FAERS Safety Report 9021568 (Version 1)
Quarter: 2013Q1

REPORT INFORMATION
  Report Type: Spontaneous
  Country: US (occurrence: US)
  Receive Date: 20130119
  Receipt Date: 20130119
  Transmission Date: 20140127
  Serious: Yes (Death, Hospitalization)
  Sender: FDA-Public Use
  Company Number: US-UCBSA-075268

PATIENT
  Age: 25 Year
  Sex: Male

DRUGS (3)
  1. ALPRAZOLAM [Suspect]
  2. NITROUS OXIDE [Suspect]
  3. DIPHENHYDRAMINE [Suspect]

REACTIONS (2)
  - Cardio-respiratory arrest [Fatal]
  - Toxicity to various agents [Fatal]
